FAERS Safety Report 7993920-2 (Version None)
Quarter: 2011Q4

REPORT INFORMATION
  Report Type: 
  Country: None (occurrence: None)
  Receive Date: 20111215
  Receipt Date: 20111201
  Transmission Date: 20120403
  Serious: Yes (Hospitalization)
  Sender: FDA-Public Use
  Company Number: 2011-396

PATIENT
  Age: 62 Year
  Sex: Male
  Weight: 77 kg

DRUGS (33)
  1. PRIALT [Suspect]
     Indication: PAIN
     Dosage: 0.43 UG, ONCE/HOUR, INTRATHECAL
     Route: 037
     Dates: start: 20110314, end: 20110323
  2. CLONIDINE HCL [Suspect]
     Indication: PAIN
     Dosage: SEE IMAGE
     Route: 037
     Dates: start: 20110513, end: 20110603
  3. CLONIDINE HCL [Suspect]
     Indication: PAIN
     Dosage: SEE IMAGE
     Route: 037
     Dates: start: 20110303, end: 20110311
  4. CLONIDINE HCL [Suspect]
     Indication: PAIN
     Dosage: SEE IMAGE
     Route: 037
     Dates: start: 20110401, end: 20110415
  5. CLONIDINE HCL [Suspect]
     Indication: PAIN
     Dosage: SEE IMAGE
     Route: 037
     Dates: start: 20110429, end: 20110513
  6. CLONIDINE HCL [Suspect]
     Indication: PAIN
     Dosage: SEE IMAGE
     Route: 037
     Dates: start: 20110603, end: 20110617
  7. CLONIDINE HCL [Suspect]
     Indication: PAIN
     Dosage: SEE IMAGE
     Route: 037
     Dates: start: 20110617
  8. CLONIDINE HCL [Suspect]
     Indication: PAIN
     Dosage: SEE IMAGE
     Route: 037
     Dates: start: 20110415, end: 20110429
  9. CLONIDINE HCL [Suspect]
     Indication: PAIN
     Dosage: SEE IMAGE
     Route: 037
     Dates: start: 20110311, end: 20110323
  10. CLONIDINE HCL [Suspect]
     Indication: PAIN
     Dosage: SEE IMAGE
     Route: 037
     Dates: start: 20110323, end: 20110401
  11. MORPHINE SULFATE [Suspect]
     Indication: PAIN
     Dosage: SEE IMAGE
     Dates: start: 20110314, end: 20110323
  12. MORPHINE SULFATE [Suspect]
     Indication: PAIN
     Dosage: SEE IMAGE
     Dates: start: 20110401, end: 20110415
  13. MORPHINE SULFATE [Suspect]
     Indication: PAIN
     Dosage: SEE IMAGE
     Dates: start: 20110513, end: 20110603
  14. MORPHINE SULFATE [Suspect]
     Indication: PAIN
     Dosage: SEE IMAGE
     Dates: start: 20110420, end: 20110429
  15. MORPHINE SULFATE [Suspect]
     Indication: PAIN
     Dosage: SEE IMAGE
     Dates: start: 20110311, end: 20110314
  16. MORPHINE SULFATE [Suspect]
     Indication: PAIN
     Dosage: SEE IMAGE
     Dates: start: 20110603, end: 20110617
  17. MORPHINE SULFATE [Suspect]
     Indication: PAIN
     Dosage: SEE IMAGE
     Dates: start: 20110628
  18. MORPHINE SULFATE [Suspect]
     Indication: PAIN
     Dosage: SEE IMAGE
     Dates: start: 20110303, end: 20110311
  19. MORPHINE SULFATE [Suspect]
     Indication: PAIN
     Dosage: SEE IMAGE
     Dates: start: 20110415, end: 20110420
  20. MORPHINE SULFATE [Suspect]
     Indication: PAIN
     Dosage: SEE IMAGE
     Dates: start: 20110323, end: 20110401
  21. MORPHINE SULFATE [Suspect]
     Indication: PAIN
     Dosage: SEE IMAGE
     Dates: start: 20110429, end: 20110513
  22. MORPHINE SULFATE [Suspect]
     Indication: PAIN
     Dosage: SEE IMAGE
     Dates: start: 20110617, end: 20110628
  23. NAROPIN [Suspect]
     Indication: PAIN
     Dosage: SEE IMAGE
     Route: 037
     Dates: start: 20110311, end: 20110314
  24. NAROPIN [Suspect]
     Indication: PAIN
     Dosage: SEE IMAGE
     Route: 037
     Dates: start: 20110314, end: 20110323
  25. NAROPIN [Suspect]
     Indication: PAIN
     Dosage: SEE IMAGE
     Route: 037
     Dates: start: 20110429, end: 20110513
  26. NAROPIN [Suspect]
     Indication: PAIN
     Dosage: SEE IMAGE
     Route: 037
     Dates: start: 20110603, end: 20110617
  27. NAROPIN [Suspect]
     Indication: PAIN
     Dosage: SEE IMAGE
     Route: 037
     Dates: start: 20110415, end: 20110420
  28. NAROPIN [Suspect]
     Indication: PAIN
     Dosage: SEE IMAGE
     Route: 037
     Dates: start: 20110323, end: 20110401
  29. NAROPIN [Suspect]
     Indication: PAIN
     Dosage: SEE IMAGE
     Route: 037
     Dates: start: 20110401, end: 20110415
  30. NAROPIN [Suspect]
     Indication: PAIN
     Dosage: SEE IMAGE
     Route: 037
     Dates: start: 20110303, end: 20110311
  31. NAROPIN [Suspect]
     Indication: PAIN
     Dosage: SEE IMAGE
     Route: 037
     Dates: start: 20110513, end: 20110603
  32. NAROPIN [Suspect]
     Indication: PAIN
     Dosage: SEE IMAGE
     Route: 037
     Dates: start: 20110420, end: 20110429
  33. NAROPIN [Suspect]
     Indication: PAIN
     Dosage: SEE IMAGE
     Route: 037
     Dates: start: 20110628

REACTIONS (3)
  - NEUTROPENIA [None]
  - HYPERSOMNIA [None]
  - THROMBOCYTOPENIA [None]
